FAERS Safety Report 23886594 (Version 2)
Quarter: 2024Q3

REPORT INFORMATION
  Report Type: Spontaneous
  Country: US (occurrence: US)
  Receive Date: 20240522
  Receipt Date: 20240710
  Transmission Date: 20241017
  Serious: Yes (Disabling)
  Sender: BRISTOL MYERS SQUIBB
  Company Number: US-BRISTOL-MYERS SQUIBB COMPANY-2024-079293

PATIENT
  Age: 71 Year
  Sex: Male

DRUGS (1)
  1. ORENCIA [Suspect]
     Active Substance: ABATACEPT
     Indication: Rheumatoid arthritis
     Route: 058
     Dates: start: 201808

REACTIONS (2)
  - Joint swelling [Recovered/Resolved]
  - Arthralgia [Recovered/Resolved]
